FAERS Safety Report 8222945-7 (Version None)
Quarter: 2012Q1

REPORT INFORMATION
  Report Type: 
  Country: None (occurrence: None)
  Receive Date: 20120320
  Receipt Date: 20120314
  Transmission Date: 20120608
  Serious: Yes (Other)
  Sender: FDA-Public Use
  Company Number: PHHY2012BR023082

PATIENT
  Sex: Male

DRUGS (2)
  1. DIOVAN HCT [Suspect]
     Indication: BLOOD PRESSURE
     Dosage: 80 MG VALSARTAN AND 12.5 MG HCT QD
     Dates: start: 20070101
  2. DIOVAN [Suspect]
     Indication: BLOOD PRESSURE
     Dosage: 8 MG, QHS
     Dates: start: 20070101

REACTIONS (7)
  - BLOOD TRIGLYCERIDES INCREASED [None]
  - PAIN [None]
  - BLOOD URIC ACID INCREASED [None]
  - MYOCARDIAL INFARCTION [None]
  - HYPERTENSION [None]
  - BLOOD CHOLESTEROL INCREASED [None]
  - BLOOD GLUCOSE ABNORMAL [None]
